FAERS Safety Report 8843356 (Version 1)
Quarter: 2012Q4

REPORT INFORMATION
  Report Type: 
  Country: US (occurrence: US)
  Receive Date: 20121016
  Receipt Date: 20121016
  Transmission Date: 20130627
  Serious: Yes (Other)
  Sender: FDA-Public Use
  Company Number: US-BAYER-2012-106663

PATIENT
  Age: 62 Year
  Sex: Female
  Weight: 77 kg

DRUGS (8)
  1. BAYER ASPIRIN [Suspect]
     Indication: ISCHAEMIC HEART DISEASE PROPHYLAXIS
     Dosage: 1 DF, QD
     Route: 048
     Dates: start: 201201, end: 20121007
  2. BAYER ASPIRIN [Suspect]
     Indication: ISCHAEMIC HEART DISEASE PROPHYLAXIS
     Dosage: 1 DF, QD
     Route: 048
     Dates: start: 2012, end: 20121007
  3. LANTUS [Concomitant]
  4. EFFEXOR [Concomitant]
  5. CLONAZEPAM [Concomitant]
  6. TRILIPIX [Concomitant]
  7. LIPITOR [Concomitant]
  8. HUMALOG [INSULIN LISPRO] [Concomitant]

REACTIONS (4)
  - Amnesia [Not Recovered/Not Resolved]
  - Abdominal pain upper [Not Recovered/Not Resolved]
  - Rash [Not Recovered/Not Resolved]
  - Dyspepsia [Not Recovered/Not Resolved]
